FAERS Safety Report 8416088-7 (Version None)
Quarter: 2012Q2

REPORT INFORMATION
  Report Type: 
  Country: None (occurrence: None)
  Receive Date: 20120606
  Receipt Date: 20120530
  Transmission Date: 20120825
  Serious: Yes (Hospitalization)
  Sender: FDA-Public Use
  Company Number: US-BAYER-2012-014319

PATIENT
  Age: 34 Year
  Sex: Female
  Weight: 93.424 kg

DRUGS (10)
  1. METHLAQUIN [Concomitant]
     Dosage: UNK
  2. ARIXTRA [Concomitant]
     Dosage: UNK
  3. PIROXICAM [Concomitant]
     Dosage: 20 MG, UNK
     Route: 048
     Dates: start: 20100120
  4. AMBIEN [Concomitant]
     Dosage: UNK
  5. IBUPROFEN [Concomitant]
     Dosage: 800 MG, AS NEEDED
     Route: 048
  6. VALACICLOVIR [Concomitant]
     Indication: ANTIVIRAL TREATMENT
     Dosage: 500 MG TAKE ONE TABLET TWICE EVERY DAY FOR 3 DAYS [AT] ONSET OF OUTBREAK.
     Route: 048
  7. MEFLOQUINE HYDROCHLORIDE [Concomitant]
     Indication: MALARIA
     Dosage: 250 MG, TAKE ONE TABLET EVERY WEEK STARTING TWO WEEKS PRIOR TO TRIP AND CONTINUE FOR FOUR WEEKS AFTE
     Route: 048
     Dates: start: 20090201, end: 20100201
  8. YAZ [Suspect]
     Indication: CONTRACEPTION
     Dosage: UNK
     Dates: start: 20071201, end: 20080801
  9. YAZ [Suspect]
     Dosage: UNK
     Dates: start: 20090211, end: 20100227
  10. PRIMAQUINE PHOSPHATE [Concomitant]
     Indication: MALARIA
     Dosage: 26.3 MG, TAKE TWO TABLETS EVERY DAY FOR FOURTEEN DAYS. FIRST DOSE DAY OF DEPARTURE TO HOMEBASE
     Route: 048
     Dates: start: 20090201, end: 20100201

REACTIONS (5)
  - DEEP VEIN THROMBOSIS [None]
  - PULMONARY EMBOLISM [None]
  - POST THROMBOTIC SYNDROME [None]
  - PAIN IN EXTREMITY [None]
  - OEDEMA PERIPHERAL [None]
